FAERS Safety Report 21871353 (Version 1)
Quarter: 2023Q1

REPORT INFORMATION
  Report Type: Spontaneous
  Country: FR (occurrence: FR)
  Receive Date: 20230117
  Receipt Date: 20230117
  Transmission Date: 20230417
  Serious: Yes (Other)
  Sender: FDA-Public Use
  Company Number: FR-MYLANLABS-2023M1002744

PATIENT
  Sex: Male

DRUGS (2)
  1. ANASTROZOLE [Suspect]
     Active Substance: ANASTROZOLE
     Indication: Gynaecomastia
     Dosage: UNK
     Route: 065
  2. ANASTROZOLE [Suspect]
     Active Substance: ANASTROZOLE
     Indication: Oestradiol increased

REACTIONS (13)
  - Haematuria [Unknown]
  - Palpitations [Unknown]
  - Urticaria [Unknown]
  - Libido decreased [Unknown]
  - Anxiety [Unknown]
  - Affective disorder [Unknown]
  - Acne [Unknown]
  - Dizziness [Unknown]
  - Arthralgia [Unknown]
  - Headache [Unknown]
  - Asthenia [Unknown]
  - Hot flush [Unknown]
  - Diarrhoea [Unknown]
